FAERS Safety Report 13200406 (Version 3)
Quarter: 2017Q1

REPORT INFORMATION
  Report Type: Spontaneous
  Country: JP (occurrence: JP)
  Receive Date: 20170208
  Receipt Date: 20170301
  Transmission Date: 20170428
  Serious: Yes (Hospitalization, Other)
  Sender: FDA-Public Use
  Company Number: JP-ROCHE-1891059

PATIENT
  Age: 58 Year
  Sex: Female

DRUGS (2)
  1. PREDNISOLONE. [Suspect]
     Active Substance: PREDNISOLONE
     Indication: PRODUCT USED FOR UNKNOWN INDICATION
     Dosage: DOSAGE IS UNCERTAIN.
     Route: 065
  2. ACTEMRA [Suspect]
     Active Substance: TOCILIZUMAB
     Indication: RHEUMATOID ARTHRITIS
     Dosage: DATE OF MOST RECENT DOSE:21/JUL/2016
     Route: 065
     Dates: start: 20120119

REACTIONS (3)
  - Mycobacterium avium complex infection [Unknown]
  - Pleurisy [Not Recovered/Not Resolved]
  - Mycobacterial infection [Not Recovered/Not Resolved]

NARRATIVE: CASE EVENT DATE: 20160719
